FAERS Safety Report 7628711-5 (Version None)
Quarter: 2011Q3

REPORT INFORMATION
  Report Type: 
  Country: None (occurrence: None)
  Receive Date: 20110715
  Receipt Date: 20110701
  Transmission Date: 20111222
  Serious: Yes (Death)
  Sender: FDA-Public Use
  Company Number: TCI2011A03536

PATIENT
  Age: 68 Year
  Sex: Male

DRUGS (3)
  1. ACTOS [Suspect]
     Indication: TYPE 2 DIABETES MELLITUS
     Dosage: 15 MG (15 MG, 1 D)  PER ORAL, 30 MG (30 MG,1 D) PER ORAL
     Route: 048
     Dates: start: 20080509
  2. ACTOS [Suspect]
     Indication: TYPE 2 DIABETES MELLITUS
     Dosage: 15 MG (15 MG, 1 D)  PER ORAL, 30 MG (30 MG,1 D) PER ORAL
     Route: 048
     Dates: end: 20090714
  3. SULFONAMIDES, UREA DERIVATIVES [Concomitant]

REACTIONS (1)
  - DEATH [None]
